FAERS Safety Report 19314689 (Version 2)
Quarter: 2022Q1

REPORT INFORMATION
  Report Type: Spontaneous
  Country: US (occurrence: US)
  Receive Date: 20210527
  Receipt Date: 20220131
  Transmission Date: 20220423
  Serious: No
  Sender: FDA-Public Use
  Company Number: US-SA-SAC20210521000132

PATIENT
  Sex: Female

DRUGS (1)
  1. DUPIXENT [Suspect]
     Active Substance: DUPILUMAB
     Indication: Dermatitis atopic
     Dosage: UNK
     Route: 058
     Dates: start: 202101

REACTIONS (6)
  - Pruritus [Unknown]
  - Sleep disorder [Unknown]
  - Eczema [Unknown]
  - Dry skin [Unknown]
  - Skin fissures [Unknown]
  - Drug ineffective [Unknown]
